FAERS Safety Report 10519065 (Version 2)
Quarter: 2015Q3

REPORT INFORMATION
  Report Type: Spontaneous
  Country: US (occurrence: US)
  Receive Date: 20141015
  Receipt Date: 20150701
  Transmission Date: 20151125
  Serious: Yes (Other)
  Sender: FDA-Public Use
  Company Number: US-GLAXOSMITHKLINE-US2014GSK004985

PATIENT
  Age: 65 Year

DRUGS (13)
  1. ADVAIR DISKUS [Suspect]
     Active Substance: FLUTICASONE PROPIONATE\SALMETEROL XINAFOATE
     Indication: ASTHMA
     Dosage: 1 DF, QD
     Dates: start: 2005
  2. SIMVASTATIN. [Concomitant]
     Active Substance: SIMVASTATIN
  3. ZOCOR [Concomitant]
     Active Substance: SIMVASTATIN
  4. ZAFIRLUKAST. [Concomitant]
     Active Substance: ZAFIRLUKAST
  5. VENTOLIN HFA [Suspect]
     Active Substance: ALBUTEROL SULFATE
     Indication: ASTHMA
     Dosage: 2 DF, PRN
     Route: 055
     Dates: start: 2010
  6. RANEXA [Concomitant]
     Active Substance: RANOLAZINE
  7. IMDUR [Concomitant]
     Active Substance: ISOSORBIDE MONONITRATE
  8. METOPROLOL [Concomitant]
     Active Substance: METOPROLOL
  9. OMEPRAZOLE. [Concomitant]
     Active Substance: OMEPRAZOLE
  10. LASIX [Concomitant]
     Active Substance: FUROSEMIDE
  11. DUONEB [Concomitant]
     Active Substance: ALBUTEROL SULFATE\IPRATROPIUM BROMIDE
  12. FUROSEMIDE. [Concomitant]
     Active Substance: FUROSEMIDE
  13. ALBUTEROL. [Concomitant]
     Active Substance: ALBUTEROL

REACTIONS (1)
  - Prostate cancer recurrent [Recovering/Resolving]

NARRATIVE: CASE EVENT DATE: 201201
